FAERS Safety Report 6780169-4 (Version None)
Quarter: 2010Q2

REPORT INFORMATION
  Report Type: 
  Country: None (occurrence: None)
  Receive Date: 20100618
  Receipt Date: 20100615
  Transmission Date: 20101027
  Serious: Yes (Hospitalization, Other)
  Sender: FDA-Public Use
  Company Number: US-ELI_LILLY_AND_COMPANY-US200906005613

PATIENT
  Sex: Female
  Weight: 86.168 kg

DRUGS (23)
  1. BYETTA [Suspect]
     Dosage: 10 UG, UNK
     Dates: start: 20060519, end: 20060617
  2. BYETTA [Suspect]
     Dates: start: 20080101
  3. PRILOSEC [Concomitant]
     Indication: GASTROOESOPHAGEAL REFLUX DISEASE
  4. LIPITOR [Concomitant]
     Indication: BLOOD CHOLESTEROL
  5. LEVOXYL [Concomitant]
     Indication: HYPOTHYROIDISM
  6. ALLEGRA [Concomitant]
     Indication: HYPERSENSITIVITY
  7. PLAVIX [Concomitant]
  8. CARBAMAZEPINE [Concomitant]
     Indication: BIPOLAR DISORDER
  9. FUROSEMIDE [Concomitant]
     Indication: CARDIAC DISORDER
  10. HYDROCODONE [Concomitant]
     Indication: PAIN
  11. LOTENSIN [Concomitant]
     Indication: HYPERTENSION
  12. NOVOLOG [Concomitant]
     Indication: BLOOD INSULIN
  13. LANTUS [Concomitant]
     Indication: BLOOD INSULIN
  14. NITROGLYCERIN [Concomitant]
     Indication: PROPHYLAXIS
  15. BENAZEPRIL HYDROCHLORIDE [Concomitant]
     Indication: HYPERTENSION
  16. COREG [Concomitant]
     Indication: HYPERTENSION
  17. ZETIA [Concomitant]
     Indication: BLOOD CHOLESTEROL INCREASED
  18. LYRICA [Concomitant]
     Indication: NEURALGIA
  19. METOCLOPRAMIDE [Concomitant]
     Indication: GASTROOESOPHAGEAL REFLUX DISEASE
  20. GABAPENTIN [Concomitant]
  21. PRIMAXIN [Concomitant]
     Dates: start: 20070521
  22. NORTRIPTYLINE HCL [Concomitant]
  23. NAPROXEN [Concomitant]

REACTIONS (5)
  - LIVER DISORDER [None]
  - OFF LABEL USE [None]
  - PANCREATITIS [None]
  - PANCREATITIS ACUTE [None]
  - RENAL INJURY [None]
